FAERS Safety Report 7919105-3 (Version None)
Quarter: 2011Q4

REPORT INFORMATION
  Report Type: 
  Country: None (occurrence: None)
  Receive Date: 20111116
  Receipt Date: 20110826
  Transmission Date: 20120403
  Serious: Yes (Hospitalization, Other)
  Sender: FDA-Public Use
  Company Number: PHHY2011TW52483

PATIENT
  Sex: Male

DRUGS (1)
  1. GLEEVEC [Suspect]
     Dosage: UNK UKN, UNK

REACTIONS (8)
  - DRUG INEFFECTIVE [None]
  - MENTAL DISORDER [None]
  - HAEMORRHOIDS [None]
  - HAEMOGLOBIN DECREASED [None]
  - MUSCLE SPASMS [None]
  - RENAL IMPAIRMENT [None]
  - AMNESIA [None]
  - DEPRESSION [None]
